FAERS Safety Report 18193375 (Version 2)
Quarter: 2020Q3

REPORT INFORMATION
  Report Type: Spontaneous
  Country: FR (occurrence: FR)
  Receive Date: 20200825
  Receipt Date: 20200915
  Transmission Date: 20201103
  Serious: Yes (Hospitalization)
  Sender: FDA-Public Use
  Company Number: FR-PFIZER INC-2020325409

PATIENT
  Age: 89 Year
  Sex: Male

DRUGS (7)
  1. LOXAPAC [LOXAPINE] [Interacting]
     Active Substance: LOXAPINE
     Dosage: 50 MG, SINGLE
     Route: 048
     Dates: start: 20200714, end: 20200714
  2. PARKINANE LP [Concomitant]
     Active Substance: TRIHEXYPHENIDYL HYDROCHLORIDE
     Dosage: 5 MG, SINGLE
     Route: 048
     Dates: start: 20200714, end: 20200714
  3. IXPRIM [Interacting]
     Active Substance: ACETAMINOPHEN\TRAMADOL HYDROCHLORIDE
     Dosage: 1 DF, SINGLE
     Route: 048
     Dates: start: 20200714, end: 20200714
  4. ALPRAZOLAM. [Suspect]
     Active Substance: ALPRAZOLAM
     Dosage: 0.25 MG, SINGLE
     Route: 048
     Dates: start: 20200714, end: 20200714
  5. MIANSERIN HYDROCHLORIDE [Interacting]
     Active Substance: MIANSERIN HYDROCHLORIDE
     Dosage: 30 MG, SINGLE
     Route: 048
     Dates: start: 20200714, end: 20200714
  6. XEROQUEL LP [Interacting]
     Active Substance: QUETIAPINE FUMARATE
     Dosage: 100 MG, SINGLE
     Route: 048
     Dates: start: 20200714, end: 20200714
  7. DEPAMIDE [Interacting]
     Active Substance: VALPROMIDE
     Dosage: 300 MG, SINGLE
     Route: 048
     Dates: start: 20200714, end: 20200714

REACTIONS (5)
  - Altered state of consciousness [Recovered/Resolved]
  - Drug interaction [Recovered/Resolved]
  - Wrong patient received product [Recovered/Resolved]
  - Somnolence [Recovered/Resolved]
  - Pneumonia aspiration [Recovered/Resolved]

NARRATIVE: CASE EVENT DATE: 20200714
